FAERS Safety Report 17724254 (Version 7)
Quarter: 2021Q1

REPORT INFORMATION
  Report Type: Spontaneous
  Country: US (occurrence: US)
  Receive Date: 20200429
  Receipt Date: 20210203
  Transmission Date: 20210419
  Serious: Yes (Other)
  Sender: FDA-Public Use
  Company Number: US-VERTEX PHARMACEUTICALS-2020-009535

PATIENT
  Sex: Male

DRUGS (17)
  1. VITAMIN D [COLECALCIFEROL] [Concomitant]
     Active Substance: CHOLECALCIFEROL
  2. ACETYLCYSTEINE. [Concomitant]
     Active Substance: ACETYLCYSTEINE
  3. 3,3^?DIINDOLYLMETHANE [Concomitant]
     Active Substance: 3,3^-DIINDOLYLMETHANE
  4. LORATADINE. [Concomitant]
     Active Substance: LORATADINE
  5. BETACAROTENE [Concomitant]
     Active Substance: .BETA.-CAROTENE
  6. ALBUTEROL [SALBUTAMOL SULFATE] [Concomitant]
     Active Substance: ALBUTEROL SULFATE
  7. PULMOZYME [Concomitant]
     Active Substance: DORNASE ALFA
  8. SODIUM CHLORIDE. [Concomitant]
     Active Substance: SODIUM CHLORIDE
  9. CREON [Concomitant]
     Active Substance: PANCRELIPASE AMYLASE\PANCRELIPASE LIPASE\PANCRELIPASE PROTEASE
  10. DIM [DICYCLOVERINE HYDROCHLORIDE;MEFENAMIC ACID] [Concomitant]
  11. TRIKAFTA [Suspect]
     Active Substance: ELEXACAFTOR\IVACAFTOR\TEZACAFTOR
     Indication: CYSTIC FIBROSIS
     Dosage: 2 ORANGE TABS AM AND 1 BLUE TAB PM
     Route: 048
     Dates: start: 20191127, end: 20200424
  12. TRIKAFTA [Suspect]
     Active Substance: ELEXACAFTOR\IVACAFTOR\TEZACAFTOR
     Dosage: 1 ORANGE TAB DAILY
     Route: 048
     Dates: start: 20200704, end: 2020
  13. TRIKAFTA [Suspect]
     Active Substance: ELEXACAFTOR\IVACAFTOR\TEZACAFTOR
     Dosage: 1 ORANGE TAB AM, 1 BLUE TAB PM
     Route: 048
  14. IRON [Concomitant]
     Active Substance: IRON
  15. OMEPRAZOLE. [Concomitant]
     Active Substance: OMEPRAZOLE
  16. BORON [Concomitant]
     Active Substance: BORON
  17. IODINE. [Concomitant]
     Active Substance: IODINE

REACTIONS (21)
  - Speech disorder [Unknown]
  - Memory impairment [Not Recovered/Not Resolved]
  - Muscle fatigue [Unknown]
  - Eye irritation [Unknown]
  - Insomnia [Unknown]
  - Muscle twitching [Not Recovered/Not Resolved]
  - Pruritus [Recovering/Resolving]
  - Liver function test increased [Unknown]
  - Abnormal dreams [Not Recovered/Not Resolved]
  - Gait disturbance [Not Recovered/Not Resolved]
  - Eye colour change [Unknown]
  - Dry eye [Unknown]
  - Fluid retention [Unknown]
  - Mood swings [Unknown]
  - Muscle spasms [Not Recovered/Not Resolved]
  - Skin disorder [Unknown]
  - Haemangioma of skin [Unknown]
  - Rash [Unknown]
  - Blood thyroid stimulating hormone increased [Unknown]
  - Feeling abnormal [Unknown]
  - Tremor [Unknown]

NARRATIVE: CASE EVENT DATE: 2020
